FAERS Safety Report 4710045-X (Version None)
Quarter: 2005Q3

REPORT INFORMATION
  Report Type: 
  Country: None (occurrence: None)
  Receive Date: 20050708
  Receipt Date: 20050415
  Transmission Date: 20060218
  Serious: Yes (Hospitalization, Disabling, Other)
  Sender: FDA-Public Use
  Company Number: GBWYE589915APR05

PATIENT
  Sex: Male

DRUGS (5)
  1. ENBREL [Suspect]
     Indication: DRUG USE FOR UNKNOWN INDICATION
     Dosage: UNKNOWN
     Route: 058
     Dates: start: 20040101, end: 20050201
  2. HUMIRA [Suspect]
     Dosage: UNKNOWN
     Dates: start: 20050201, end: 20050420
  3. PREDNISOLONE [Concomitant]
  4. PREDNISOLONE [Concomitant]
     Dates: start: 20050421
  5. WARFARIN [Concomitant]
     Route: 047

REACTIONS (5)
  - BLINDNESS [None]
  - DEEP VEIN THROMBOSIS [None]
  - EPISCLERITIS [None]
  - OPTIC NEURITIS [None]
  - TEMPORAL ARTERITIS [None]
